FAERS Safety Report 4414205-7 (Version None)
Quarter: 2004Q3

REPORT INFORMATION
  Report Type: 
  Country: None (occurrence: None)
  Receive Date: 20040729
  Receipt Date: 20040719
  Transmission Date: 20050211
  Serious: No
  Sender: FDA-Public Use
  Company Number: 2004-118718-NL

PATIENT
  Age: 46 Year
  Sex: Female

DRUGS (20)
  1. ROCURONIUM [Suspect]
     Indication: MUSCLE RELAXANT THERAPY
     Dosage: 50 MG ONCE INTRAVENOUS (NOS)
     Route: 042
     Dates: start: 20040128, end: 20040128
  2. HL10 [Suspect]
     Indication: ACUTE RESPIRATORY DISTRESS SYNDROME
     Dosage: 90 ML ONCE/180 ML
     Route: 007
     Dates: start: 20040128, end: 20040128
  3. MORPHINE [Concomitant]
  4. MIDAZOLAM HYDROCHLORIDE [Concomitant]
  5. PROPOFOL [Concomitant]
  6. PHENYLEPHRINE [Concomitant]
  7. HUMULIN [Concomitant]
  8. DROTRECOGIN ALFA [Concomitant]
  9. HEPARIN [Concomitant]
  10. PANTOPRAZOLE SODIUM [Concomitant]
  11. PARACETAMOL [Concomitant]
  12. MEROPENEM [Concomitant]
  13. HYDROCORTISONE [Concomitant]
  14. ALBUTEROL SULFATE [Concomitant]
  15. SALMETEROL XINAFOATE [Concomitant]
  16. FLUTICASONE PROPIONATE [Concomitant]
  17. IPATROPIUM BROMIDE [Concomitant]
  18. FLUCONAZOLE [Concomitant]
  19. CLOTRIMAZOLE [Concomitant]
  20. CHLORHEXIDINE [Concomitant]

REACTIONS (2)
  - HYPERCAPNIA [None]
  - RESPIRATORY ACIDOSIS [None]
